FAERS Safety Report 13083540 (Version 2)
Quarter: 2017Q1

REPORT INFORMATION
  Report Type: Report from Study
  Country: AU (occurrence: AU)
  Receive Date: 20170104
  Receipt Date: 20170123
  Transmission Date: 20170428
  Serious: Yes (Other)
  Sender: FDA-Public Use
  Company Number: AU-ROCHE-1838387

PATIENT
  Sex: Female

DRUGS (2)
  1. ACTEMRA [Suspect]
     Active Substance: TOCILIZUMAB
     Route: 042
     Dates: start: 20161129, end: 20170116
  2. ACTEMRA [Suspect]
     Active Substance: TOCILIZUMAB
     Indication: RHEUMATOID ARTHRITIS
     Dosage: APPROX. 4 TIMES WEEKLY, ONGOING
     Route: 042
     Dates: start: 20160421

REACTIONS (7)
  - Musculoskeletal stiffness [Not Recovered/Not Resolved]
  - Furuncle [Recovered/Resolved]
  - Arthralgia [Not Recovered/Not Resolved]
  - Furuncle [Not Recovered/Not Resolved]
  - Groin abscess [Not Recovered/Not Resolved]
  - Joint stiffness [Not Recovered/Not Resolved]
  - Furuncle [Unknown]
